FAERS Safety Report 8041598-4 (Version None)
Quarter: 2012Q1

REPORT INFORMATION
  Report Type: 
  Country: None (occurrence: None)
  Receive Date: 20120112
  Receipt Date: 20120104
  Transmission Date: 20120608
  Serious: Yes (Hospitalization)
  Sender: FDA-Public Use
  Company Number: US-BAYER-2011-005041

PATIENT
  Age: 22 Year
  Sex: Female

DRUGS (1)
  1. DROSPIRENONE AND ETHINYL ESTRADIOL [Suspect]
     Indication: CONTRACEPTION
     Dosage: UNK
     Dates: start: 20080801, end: 20081201

REACTIONS (5)
  - PAIN [None]
  - DEPRESSION [None]
  - ANXIETY [None]
  - CHOLELITHIASIS [None]
  - EMOTIONAL DISTRESS [None]
